FAERS Safety Report 6789065-X (Version None)
Quarter: 2010Q2

REPORT INFORMATION
  Report Type: 
  Country: None (occurrence: None)
  Receive Date: 20100623
  Receipt Date: 20080729
  Transmission Date: 20101027
  Serious: No
  Sender: FDA-Public Use
  Company Number: US-PFIZER INC-2008051363

PATIENT
  Sex: Female
  Weight: 74.84 kg

DRUGS (5)
  1. DIFLUCAN [Suspect]
     Indication: RASH
     Route: 048
     Dates: start: 20080501
  2. PRENATAL VITAMINS [Concomitant]
  3. ANTIDIARRHOEAL MICROORGANISMS [Concomitant]
  4. ACIDOPHILUS [Concomitant]
  5. FISH OIL [Concomitant]

REACTIONS (4)
  - APHONIA [None]
  - DRY MOUTH [None]
  - PAIN [None]
  - POLYDIPSIA [None]
